FAERS Safety Report 17418453 (Version 2)
Quarter: 2020Q1

REPORT INFORMATION
  Report Type: Report from Study
  Country: US (occurrence: US)
  Receive Date: 20200214
  Receipt Date: 20200302
  Transmission Date: 20200409
  Serious: Yes (Other)
  Sender: FDA-Public Use
  Company Number: US-ASTELLAS-2020US005123

PATIENT
  Sex: Female

DRUGS (2)
  1. MIRABEGRON [Suspect]
     Active Substance: MIRABEGRON
     Indication: PRODUCT USED FOR UNKNOWN INDICATION
     Route: 048
  2. MIRABEGRON [Suspect]
     Active Substance: MIRABEGRON
     Route: 048

REACTIONS (9)
  - Malaise [Unknown]
  - Hypoacusis [Unknown]
  - Weight decreased [Unknown]
  - Cognitive disorder [Unknown]
  - Pollakiuria [Unknown]
  - Balance disorder [Unknown]
  - Dizziness [Unknown]
  - Blindness [Unknown]
  - Inability to afford medication [Unknown]
